FAERS Safety Report 21839419 (Version 1)
Quarter: 2023Q1

REPORT INFORMATION
  Report Type: Spontaneous
  Country: US (occurrence: US)
  Receive Date: 20230109
  Receipt Date: 20230109
  Transmission Date: 20230418
  Serious: Yes (Other)
  Sender: FDA-Public Use
  Company Number: US-DUCHESNAY-2023US000002

PATIENT

DRUGS (3)
  1. DICLEGIS [Suspect]
     Active Substance: DOXYLAMINE SUCCINATE\PYRIDOXINE HYDROCHLORIDE
     Indication: Morning sickness
     Dosage: 3 TIMES PER DAY
     Route: 048
     Dates: start: 202209
  2. DICLEGIS [Suspect]
     Active Substance: DOXYLAMINE SUCCINATE\PYRIDOXINE HYDROCHLORIDE
     Dosage: 4 TIMES PER DAY (40 MG DAILY)
     Route: 048
     Dates: end: 20221223
  3. DIETARY SUPPLEMENT [Suspect]
     Active Substance: DIETARY SUPPLEMENT
     Indication: Product used for unknown indication
     Dosage: 4 GUMMIES PER DAY
     Route: 048

REACTIONS (10)
  - Neuropathy peripheral [Recovering/Resolving]
  - Hypervitaminosis [Recovering/Resolving]
  - Pain in extremity [Recovering/Resolving]
  - Hypokinesia [Recovering/Resolving]
  - Peripheral swelling [Recovering/Resolving]
  - Burning sensation [Recovering/Resolving]
  - Musculoskeletal stiffness [Recovering/Resolving]
  - Hypoaesthesia [Recovering/Resolving]
  - Sleep disorder due to a general medical condition [Recovered/Resolved]
  - Paraesthesia [Recovering/Resolving]

NARRATIVE: CASE EVENT DATE: 20221203
